FAERS Safety Report 4881408-7 (Version None)
Quarter: 2005Q4

REPORT INFORMATION
  Report Type: 
  Country: None (occurrence: None)
  Receive Date: 20051212
  Receipt Date: 20050818
  Transmission Date: 20060501
  Serious: No
  Sender: FDA-Public Use
  Company Number: 2005-01773

PATIENT
  Age: 72 Year
  Sex: Female
  Weight: 46.3 kg

DRUGS (12)
  1. VELCADE [Suspect]
     Indication: MULTIPLE MYELOMA
     Dates: start: 20050801, end: 20050801
  2. DEXAMETHASONE TAB [Concomitant]
  3. FLUCONAZOLE [Concomitant]
  4. FLAGYL [Concomitant]
  5. LEVAQUIN [Concomitant]
  6. ACYCLOVIR [Concomitant]
  7. RANITIDINE [Concomitant]
  8. FOLIC ACID [Concomitant]
  9. LOVENOX [Concomitant]
  10. IMODIUM [Concomitant]
  11. CALCIUM (CALCIUM) [Concomitant]
  12. MULTIVITAMINS (ERGOCALCIFEROL, PANTHENOL, NICOTINAMIDE, RIBOFLAVIN, TH [Concomitant]

REACTIONS (3)
  - ASTHENIA [None]
  - FEELING HOT [None]
  - PARAESTHESIA [None]
